FAERS Safety Report 5352999-7 (Version None)
Quarter: 2007Q2

REPORT INFORMATION
  Report Type: 
  Country: None (occurrence: None)
  Receive Date: 20070611
  Receipt Date: 20070530
  Transmission Date: 20071010
  Serious: Yes (Hospitalization, Other)
  Sender: FDA-Public Use
  Company Number: US-PFIZER INC-2007044359

PATIENT
  Sex: Male
  Weight: 122.5 kg

DRUGS (2)
  1. GEODON [Suspect]
     Indication: SCHIZOPHRENIA
     Dates: start: 20070509, end: 20070530
  2. LEXAPRO [Concomitant]

REACTIONS (4)
  - CONTUSION [None]
  - HYPERSENSITIVITY [None]
  - NIGHTMARE [None]
  - URTICARIA [None]
